FAERS Safety Report 7675164-7 (Version None)
Quarter: 2011Q3

REPORT INFORMATION
  Report Type: 
  Country: None (occurrence: None)
  Receive Date: 20110810
  Receipt Date: 20110810
  Transmission Date: 20111222
  Serious: Yes (Life-Threatening, Hospitalization)
  Sender: FDA-Public Use
  Company Number: None

PATIENT
  Sex: Male
  Weight: 104.32 kg

DRUGS (2)
  1. TRILIPIX [Concomitant]
  2. ZETIA [Suspect]

REACTIONS (2)
  - CHOLELITHIASIS [None]
  - PANCREATITIS [None]
